FAERS Safety Report 23494088 (Version 2)
Quarter: 2025Q2

REPORT INFORMATION
  Report Type: Spontaneous
  Country: US (occurrence: US)
  Receive Date: 20240207
  Receipt Date: 20250626
  Transmission Date: 20250716
  Serious: Yes (Other)
  Sender: PFIZER
  Company Number: US-PFIZER INC-PV202400017628

PATIENT
  Age: 61 Year

DRUGS (1)
  1. ZARONTIN [Suspect]
     Active Substance: ETHOSUXIMIDE
     Dosage: 250MG 2 IN THE MORNING, 2 AT NIGHT

REACTIONS (5)
  - Weight increased [Unknown]
  - Blood sodium increased [Unknown]
  - Swelling [Unknown]
  - Injury [Unknown]
  - Throat irritation [Unknown]
